FAERS Safety Report 21406077 (Version 1)
Quarter: 2022Q4

REPORT INFORMATION
  Report Type: Spontaneous
  Country: US (occurrence: None)
  Receive Date: 20221003
  Receipt Date: 20221003
  Transmission Date: 20230112
  Serious: No
  Sender: FDA-Public Use
  Company Number: None

PATIENT
  Age: 77 Year
  Sex: Male

DRUGS (1)
  1. TRAVOPROST [Suspect]
     Active Substance: TRAVOPROST
     Dosage: FREQUENCY : AT BEDTIME;?
     Route: 031
     Dates: start: 20220623, end: 20220908

REACTIONS (2)
  - Hyperaemia [None]
  - Eyelid margin crusting [None]

NARRATIVE: CASE EVENT DATE: 20220908
